FAERS Safety Report 25575574 (Version 1)
Quarter: 2025Q3

REPORT INFORMATION
  Report Type: Spontaneous
  Country: CN (occurrence: CN)
  Receive Date: 20250718
  Receipt Date: 20250718
  Transmission Date: 20251020
  Serious: Yes (Hospitalization)
  Sender: ALEXION PHARMACEUTICALS
  Company Number: CN-AstraZeneca-CH-00909589A

PATIENT
  Sex: Female
  Weight: 47 kg

DRUGS (3)
  1. TAGRISSO [Suspect]
     Active Substance: OSIMERTINIB
     Route: 065
     Dates: start: 20220906, end: 20240327
  2. TAGRISSO [Suspect]
     Active Substance: OSIMERTINIB
     Route: 065
     Dates: start: 20220906, end: 20240327
  3. TAGRISSO [Suspect]
     Active Substance: OSIMERTINIB
     Route: 065
     Dates: start: 20220906, end: 20240327

REACTIONS (1)
  - Iron deficiency anaemia [Not Recovered/Not Resolved]

NARRATIVE: CASE EVENT DATE: 20240528
